FAERS Safety Report 7773013-X (Version None)
Quarter: 2011Q3

REPORT INFORMATION
  Report Type: 
  Country: None (occurrence: None)
  Receive Date: 20110922
  Receipt Date: 20110307
  Transmission Date: 20111222
  Serious: No
  Sender: FDA-Public Use
  Company Number: US-ASTRAZENECA-2011SE13042

PATIENT
  Age: 43 Year
  Sex: Female
  Weight: 104.3 kg

DRUGS (17)
  1. PROTONIX [Concomitant]
  2. GLIMEPIRIDE [Concomitant]
     Indication: DIABETES MELLITUS
  3. SINGULAIR [Concomitant]
     Indication: ASTHMA
  4. FLONASE [Concomitant]
  5. IMITREX [Concomitant]
  6. LORTAB [Concomitant]
  7. SYMBICORT [Concomitant]
     Indication: ASTHMA
  8. PROCHLOR [Concomitant]
  9. DURAGESIC-100 [Concomitant]
     Indication: PAIN
  10. DURAGESIC-100 [Concomitant]
     Indication: FIBROMYALGIA
  11. LIDODERM [Concomitant]
     Indication: PAIN
  12. SEROQUEL XR [Suspect]
     Indication: BIPOLAR DISORDER
     Route: 048
     Dates: start: 20080101
  13. VENTOLIN HFA [Concomitant]
  14. CYMBALTA [Concomitant]
  15. BUSPAR [Concomitant]
  16. MELOXICAM [Concomitant]
     Indication: PAIN
  17. DOXYCYCLINE [Concomitant]
     Indication: GASTROINTESTINAL PAIN

REACTIONS (13)
  - NASAL CONGESTION [None]
  - MYALGIA [None]
  - NAUSEA [None]
  - COUGH [None]
  - PYREXIA [None]
  - INFLUENZA [None]
  - GASTROENTERITIS VIRAL [None]
  - GASTROINTESTINAL PAIN [None]
  - VOMITING [None]
  - CHILLS [None]
  - ABDOMINAL PAIN UPPER [None]
  - DIARRHOEA [None]
  - BRONCHITIS [None]
